FAERS Safety Report 11033815 (Version 2)
Quarter: 2015Q3

REPORT INFORMATION
  Report Type: Spontaneous
  Country: US (occurrence: US)
  Receive Date: 20150415
  Receipt Date: 20150806
  Transmission Date: 20151125
  Serious: Yes (Hospitalization)
  Sender: FDA-Public Use
  Company Number: US-ASTRAZENECA-2015SE32288

PATIENT
  Age: 410 Day
  Sex: Female

DRUGS (27)
  1. IPRATROPIUM [Concomitant]
     Active Substance: IPRATROPIUM
     Route: 055
  2. CLONIDINE. [Concomitant]
     Active Substance: CLONIDINE
     Dosage: QTU
     Route: 062
  3. HYDROCORTISONE. [Concomitant]
     Active Substance: HYDROCORTISONE
     Route: 042
  4. NS ALSO WENT THRU A DRUG WEAN FROM NARCOTICS [Concomitant]
  5. SYNAGIS [Suspect]
     Active Substance: PALIVIZUMAB
     Indication: PROPHYLAXIS
     Route: 030
  6. SYNAGIS [Suspect]
     Active Substance: PALIVIZUMAB
     Indication: PROPHYLAXIS
     Route: 030
     Dates: start: 20150312, end: 20150331
  7. SIMETHICONE (DIMETHICONE) [Concomitant]
     Active Substance: DIMETHICONE
     Route: 050
  8. LORAZEPAM. [Concomitant]
     Active Substance: LORAZEPAM
     Route: 048
     Dates: start: 20150421
  9. LORAZEPAM. [Concomitant]
     Active Substance: LORAZEPAM
     Dates: start: 20150423
  10. LORAZEPAM. [Concomitant]
     Active Substance: LORAZEPAM
     Dosage: STOP LORAZEPAM IF NO PRN NEEDED
     Dates: start: 20150427
  11. SPIRONOLACTONE. [Concomitant]
     Active Substance: SPIRONOLACTONE
  12. GENTAMYCIN [Concomitant]
     Active Substance: GENTAMICIN
  13. BUDESONIDE. [Concomitant]
     Active Substance: BUDESONIDE
     Route: 055
  14. LORAZEPAM. [Concomitant]
     Active Substance: LORAZEPAM
     Dates: start: 20150425
  15. OMEGAVEN [Concomitant]
     Active Substance: FISH OIL
     Route: 042
  16. SYNAGIS [Suspect]
     Active Substance: PALIVIZUMAB
     Indication: PREMATURE BABY
     Route: 030
     Dates: start: 20150312, end: 20150331
  17. LEVOTHYROXINE. [Concomitant]
     Active Substance: LEVOTHYROXINE
  18. LORAZEPAM. [Concomitant]
     Active Substance: LORAZEPAM
     Dates: start: 20150424
  19. LORAZEPAM. [Concomitant]
     Active Substance: LORAZEPAM
     Dosage: O.1 MG EVERY SIX HOURS, ONLY AS NEDED IF SIGN OF WITHDRAWAL
     Dates: start: 20150426
  20. ALBUTEROL. [Concomitant]
     Active Substance: ALBUTEROL
     Dosage: 5MG/HR
  21. AMPICILLIN [Concomitant]
     Active Substance: AMPICILLIN
     Route: 042
  22. MULTIVITAMINS [Concomitant]
     Active Substance: VITAMINS
  23. BUDESONIDE. [Concomitant]
     Active Substance: BUDESONIDE
     Dosage: TWO TIMES A DAY
     Route: 055
  24. LORAZEPAM. [Concomitant]
     Active Substance: LORAZEPAM
     Dosage: 0.4 MG,EVERY SIX HOURS, ATC, LAST WEAN 4/18
     Route: 048
     Dates: start: 20150420
  25. LORAZEPAM. [Concomitant]
     Active Substance: LORAZEPAM
     Dates: start: 20150422
  26. SYNAGIS [Suspect]
     Active Substance: PALIVIZUMAB
     Indication: PREMATURE BABY
     Route: 030
  27. ALBUTEROL. [Concomitant]
     Active Substance: ALBUTEROL
     Dosage: 20MG/HR

REACTIONS (1)
  - Dyspnoea [Unknown]

NARRATIVE: CASE EVENT DATE: 20150307
